FAERS Safety Report 9119422 (Version 1)
Quarter: 2013Q1

REPORT INFORMATION
  Report Type: Spontaneous
  Country: US (occurrence: None)
  Receive Date: 20130222
  Receipt Date: 20130222
  Transmission Date: 20140127
  Serious: Yes (Life-Threatening, Other)
  Sender: FDA-Public Use
  Company Number: None

PATIENT
  Age: 60 Year
  Sex: Female
  Weight: 39.92 kg

DRUGS (8)
  1. HYDROCODON - ACETAMINOPHEN [Suspect]
     Indication: OSTEOPOROSIS
     Dosage: 1 EVERY 8 HOURS   3 X^S A DAY?TOOK 01/31/13 (1/30 - 2/27/2013)
     Dates: start: 20130131, end: 20130227
  2. HYDROCODON - ACETAMINOPHEN [Suspect]
     Indication: ARTHRITIS
     Dosage: 1 EVERY 8 HOURS   3 X^S A DAY?TOOK 01/31/13 (1/30 - 2/27/2013)
     Dates: start: 20130131, end: 20130227
  3. HYDROCODON - ACETAMINOPHEN [Suspect]
     Indication: BONE DISORDER
     Dosage: 1 EVERY 8 HOURS   3 X^S A DAY?TOOK 01/31/13 (1/30 - 2/27/2013)
     Dates: start: 20130131, end: 20130227
  4. LYRICA [Concomitant]
  5. ENALAPRIL [Concomitant]
  6. IMIPRAMINE HCL [Concomitant]
  7. DIAZEPAM [Concomitant]
  8. NORCO [Concomitant]

REACTIONS (16)
  - Chest pain [None]
  - Eructation [None]
  - Blood pressure increased [None]
  - Palpitations [None]
  - Headache [None]
  - Superficial vein prominence [None]
  - Micturition frequency decreased [None]
  - Bladder pain [None]
  - Infrequent bowel movements [None]
  - Pain in jaw [None]
  - Nasal mucosal disorder [None]
  - Burning sensation [None]
  - Pain in extremity [None]
  - Gait disturbance [None]
  - Product substitution issue [None]
  - Product quality issue [None]
